FAERS Safety Report 13517321 (Version 1)
Quarter: 2017Q2

REPORT INFORMATION
  Report Type: Spontaneous
  Country: CA (occurrence: CA)
  Receive Date: 20170505
  Receipt Date: 20170505
  Transmission Date: 20170830
  Serious: Yes (Disabling)
  Sender: FDA-Public Use
  Company Number: CA-009507513-1705CAN001958

PATIENT
  Age: 72 Year
  Sex: Female
  Weight: 86.17 kg

DRUGS (1)
  1. JANUVIA [Suspect]
     Active Substance: SITAGLIPTIN PHOSPHATE
     Indication: DIABETES MELLITUS
     Dosage: 100 (UNITS NOT PROVIDED) EVERY 1 DAY
     Route: 048

REACTIONS (6)
  - Fall [Recovered/Resolved]
  - Gait disturbance [Recovered/Resolved]
  - Parkinsonian gait [Recovered/Resolved]
  - Confusional state [Recovered/Resolved]
  - Hypokinesia [Recovered/Resolved]
  - Cognitive disorder [Recovered/Resolved]
